FAERS Safety Report 9358463 (Version 2)
Quarter: 2013Q3

REPORT INFORMATION
  Report Type: Spontaneous
  Country: JP (occurrence: JP)
  Receive Date: 20130620
  Receipt Date: 20130705
  Transmission Date: 20140515
  Serious: Yes (Death, Hospitalization)
  Sender: FDA-Public Use
  Company Number: JP-SANOFI-AVENTIS-2013SA060140

PATIENT
  Age: 80 Year
  Sex: Male
  Weight: 64.7 kg

DRUGS (9)
  1. DOCETAXEL [Suspect]
     Indication: SKIN ANGIOSARCOMA
     Dosage: REPEAT COURSE OF 3 WEEKS OF TREATMENT FOLOWED BY ONE WEEK BREAK
     Route: 042
     Dates: start: 20080701, end: 20081114
  2. IMUNACE [Suspect]
     Indication: SKIN ANGIOSARCOMA
     Dosage: APPROXIMATE DOSE
     Route: 042
     Dates: start: 20080701, end: 20081121
  3. THERAPEUTIC RADIOPHARMACEUTICALS [Suspect]
     Indication: SKIN ANGIOSARCOMA
     Dosage: TOTAL DOSE 70 GY
     Route: 065
     Dates: start: 20080701, end: 200808
  4. ZYLORIC [Concomitant]
     Route: 048
     Dates: start: 20080718, end: 20081007
  5. PLETAAL [Concomitant]
     Route: 048
     Dates: start: 20080718, end: 20081007
  6. DIOVANE [Concomitant]
     Route: 048
     Dates: start: 20080718, end: 20080814
  7. LIPITOR [Concomitant]
     Route: 048
     Dates: start: 20080718, end: 20081007
  8. GASTER D [Concomitant]
     Indication: PROPHYLAXIS AGAINST GASTROINTESTINAL ULCER
     Route: 048
     Dates: start: 20080718, end: 20080905
  9. TAKEPRON OD [Concomitant]
     Indication: PROPHYLAXIS AGAINST GASTROINTESTINAL ULCER
     Route: 048
     Dates: start: 20080826, end: 20081007

REACTIONS (4)
  - Interstitial lung disease [Fatal]
  - Dyspnoea exertional [Fatal]
  - Respiratory failure [Fatal]
  - White blood cell count decreased [Recovered/Resolved]
